FAERS Safety Report 20483146 (Version 16)
Quarter: 2025Q2

REPORT INFORMATION
  Report Type: Spontaneous
  Country: DE (occurrence: DE)
  Receive Date: 20220217
  Receipt Date: 20250605
  Transmission Date: 20250717
  Serious: Yes (Hospitalization, Other)
  Sender: AUROBINDO
  Company Number: DE-002147023-NVSC2022DE021688

PATIENT
  Age: 66 Year
  Sex: Male
  Weight: 119 kg

DRUGS (30)
  1. ASPIRIN [Suspect]
     Active Substance: ASPIRIN
     Indication: Product used for unknown indication
     Dosage: 100 MILLIGRAM, ONCE A DAY (1-0-0)
     Route: 065
  2. RAMIPRIL [Suspect]
     Active Substance: RAMIPRIL
     Indication: Product used for unknown indication
     Dosage: 2.5 MILLIGRAM, TWO TIMES A DAY
     Route: 065
  3. RAMIPRIL [Suspect]
     Active Substance: RAMIPRIL
     Dosage: 4 MILLIGRAM, TWO TIMES A DAY
     Route: 065
  4. SIMVASTATIN [Suspect]
     Active Substance: SIMVASTATIN
     Indication: Product used for unknown indication
     Dosage: 20 MILLIGRAM, ONCE A DAY (0-0-1)
     Route: 065
  5. TAMSULOSIN [Suspect]
     Active Substance: TAMSULOSIN
     Indication: Product used for unknown indication
     Dosage: 0.4 MILLIGRAM, ONCE A DAY (1-0-0)
     Route: 065
  6. COSENTYX [Suspect]
     Active Substance: SECUKINUMAB
     Indication: Psoriasis
     Route: 058
     Dates: start: 20160112
  7. COSENTYX [Suspect]
     Active Substance: SECUKINUMAB
     Indication: Psoriatic arthropathy
  8. ATORVASTATIN CALCIUM [Concomitant]
     Active Substance: ATORVASTATIN CALCIUM
     Indication: Product used for unknown indication
     Dosage: UNK UNK, ONCE A DAY (0-0-1)
     Route: 065
  9. TICAGRELOR [Concomitant]
     Active Substance: TICAGRELOR
     Indication: Product used for unknown indication
     Dosage: UNK UNK, ONCE A DAY (BID 1-0-1)
     Route: 065
  10. BISOPROLOL [Concomitant]
     Active Substance: BISOPROLOL
     Indication: Product used for unknown indication
     Dosage: UNK UNK, ONCE A DAY (1-0-0)
     Route: 065
  11. Ni li an [Concomitant]
     Indication: Product used for unknown indication
     Dosage: UNK UNK, ONCE A DAY (BID 1-0-1)
     Route: 065
  12. PANTOPRAZOLE [Concomitant]
     Active Substance: PANTOPRAZOLE
     Indication: Product used for unknown indication
     Dosage: UNK UNK, ONCE A DAY (1-0-0)
     Route: 065
  13. AMOXICILLIN\CLAVULANIC ACID [Concomitant]
     Active Substance: AMOXICILLIN\CLAVULANIC ACID
     Indication: Gastrointestinal inflammation
     Route: 065
  14. TADALAFIL [Concomitant]
     Active Substance: TADALAFIL
     Indication: Product used for unknown indication
     Route: 065
  15. CLOPIDOGREL [Concomitant]
     Active Substance: CLOPIDOGREL BISULFATE
     Indication: Product used for unknown indication
     Route: 065
  16. METRONIDAZOLE [Concomitant]
     Active Substance: METRONIDAZOLE
     Indication: Gastrointestinal inflammation
     Route: 065
  17. ATORVASTATIN [Concomitant]
     Active Substance: ATORVASTATIN
     Indication: Product used for unknown indication
     Dosage: UNK, ONCE A DAY (STRENGTH: 10,60,30,20,80,40 MG)
     Route: 065
  18. CANDESARTAN [Concomitant]
     Active Substance: CANDESARTAN
     Indication: Product used for unknown indication
     Dosage: UNK, TWO TIMES A DAY (Q12H)
     Route: 065
  19. CANDESARTAN [Concomitant]
     Active Substance: CANDESARTAN
     Dosage: QD (UNK, QD UNK, BID (1-0-1))
     Route: 065
  20. ACETAMINOPHEN [Concomitant]
     Active Substance: ACETAMINOPHEN
     Indication: Malaise
     Dates: start: 20241229, end: 20241230
  21. MOVICOL [Concomitant]
     Active Substance: POLYETHYLENE GLYCOL 3350\POTASSIUM CHLORIDE\SODIUM BICARBONATE\SODIUM CHLORIDE
     Indication: Constipation
     Route: 065
     Dates: start: 20250103, end: 20250225
  22. MEDROL [Concomitant]
     Active Substance: METHYLPREDNISOLONE
     Indication: Contrast media allergy
     Route: 065
     Dates: start: 20241231, end: 20241231
  23. Magnecaps [Concomitant]
     Indication: Muscle spasms
     Route: 065
     Dates: start: 202406, end: 20250225
  24. ALIZAPRIDE HYDROCHLORIDE [Concomitant]
     Active Substance: ALIZAPRIDE HYDROCHLORIDE
     Indication: Malaise
     Route: 065
     Dates: start: 20241230, end: 20241230
  25. CALCIUM CARBONATE\CHOLECALCIFEROL [Concomitant]
     Active Substance: CALCIUM CARBONATE\CHOLECALCIFEROL
     Indication: Prophylaxis
     Route: 065
     Dates: start: 202406, end: 20250225
  26. INNOHEP [Concomitant]
     Active Substance: TINZAPARIN SODIUM
     Indication: Thrombosis prophylaxis
     Route: 065
     Dates: start: 20250117, end: 20250225
  27. OMEPRAZOLE [Concomitant]
     Active Substance: OMEPRAZOLE
     Indication: Gastrooesophageal reflux disease
     Route: 065
     Dates: start: 20250103, end: 20250225
  28. SODIUM PICOSULFATE [Concomitant]
     Active Substance: SODIUM PICOSULFATE
     Indication: Constipation
     Route: 065
     Dates: start: 20250103, end: 20250225
  29. AUGMENTIN [Concomitant]
     Active Substance: AMOXICILLIN\CLAVULANATE POTASSIUM
     Indication: Infection prophylaxis
     Route: 065
     Dates: start: 20250106, end: 20250112
  30. BECLOMETHASONE DIPROPIONATE\FORMOTEROL FUMARATE\GLYCOPYRROLATE [Concomitant]
     Active Substance: BECLOMETHASONE DIPROPIONATE\FORMOTEROL FUMARATE\GLYCOPYRROLATE
     Indication: Prophylaxis
     Route: 065
     Dates: start: 2019, end: 20250225

REACTIONS (40)
  - Acute myocardial infarction [Recovered/Resolved]
  - Pancreatitis acute [Recovered/Resolved]
  - Diverticulum intestinal haemorrhagic [Recovered/Resolved]
  - Rectal haemorrhage [Unknown]
  - Blood loss anaemia [Recovered/Resolved]
  - Large intestine polyp [Unknown]
  - Gastritis erosive [Unknown]
  - Hepatic steatosis [Recovered/Resolved]
  - Gastritis [Recovered/Resolved]
  - Diverticulum [Recovered/Resolved]
  - Disease recurrence [Recovered/Resolved]
  - Anaemia [Recovered/Resolved]
  - Aortic aneurysm [Unknown]
  - Colitis [Recovered/Resolved]
  - Intestinal polyp [Not Recovered/Not Resolved]
  - Thrombosis [Unknown]
  - Haematochezia [Recovered/Resolved]
  - Granuloma [Recovered/Resolved]
  - Chronic coronary syndrome [Not Recovered/Not Resolved]
  - Coronary artery stenosis [Recovered/Resolved]
  - Myocardial infarction [Recovered/Resolved]
  - Blood glucose increased [Unknown]
  - Chest discomfort [Unknown]
  - Blood creatinine increased [Recovered/Resolved]
  - Obesity [Unknown]
  - General physical health deterioration [Unknown]
  - Lipase increased [Unknown]
  - Haematocrit decreased [Unknown]
  - White blood cell count increased [Recovered/Resolved]
  - Red blood cell count decreased [Unknown]
  - Haemoglobin decreased [Unknown]
  - Abdominal pain upper [Unknown]
  - Renal cyst [Unknown]
  - C-reactive protein increased [Recovered/Resolved]
  - Benign prostatic hyperplasia [Unknown]
  - Hiatus hernia [Recovered/Resolved]
  - Haemorrhoids [Recovered/Resolved]
  - Gastrooesophageal reflux disease [Recovered/Resolved]
  - Mean cell haemoglobin increased [Unknown]
  - Blood alkaline phosphatase increased [Unknown]

NARRATIVE: CASE EVENT DATE: 20200601
